FAERS Safety Report 6931965-1 (Version None)
Quarter: 2010Q3

REPORT INFORMATION
  Report Type: 
  Country: None (occurrence: None)
  Receive Date: 20100819
  Receipt Date: 20100719
  Transmission Date: 20110219
  Serious: No
  Sender: FDA-Public Use
  Company Number: US-BAYER-201018500BCC

PATIENT
  Sex: Male

DRUGS (1)
  1. ALEVE (CAPLET) [Suspect]
     Indication: GOUT
     Dosage: UNIT DOSE: 220 MG
     Route: 048

REACTIONS (2)
  - DIARRHOEA [None]
  - FAECES DISCOLOURED [None]
